FAERS Safety Report 8929416 (Version 1)
Quarter: 2012Q4

REPORT INFORMATION
  Report Type: Spontaneous
  Country: US (occurrence: None)
  Receive Date: 20121119
  Receipt Date: 20121119
  Transmission Date: 20130627
  Serious: Yes (Other)
  Sender: FDA-Public Use
  Company Number: 2012110034

PATIENT
  Age: 44 Year
  Sex: Female
  Weight: 45.36 kg

DRUGS (6)
  1. FELBATOL [Suspect]
     Indication: SYMPTOMATIC EPILEPSY
     Route: 048
     Dates: start: 20080213, end: 2010
  2. FELBATOL [Suspect]
     Indication: SYMPTOMATIC EPILEPSY
     Dosage: 1200 mg in the morning and afternoon and 900 mg in the evening (1200 mg), oral
     Route: 048
     Dates: start: 2010
  3. KEPPRA (LEVETIRACETAM) [Concomitant]
  4. PRIMIDONE (PRIMIDONE) [Concomitant]
  5. CLINDAMYCIN [Concomitant]
  6. WOMEN^S ONE A DAY VITAMIN (VITAMINS) [Concomitant]

REACTIONS (21)
  - Palpitations [None]
  - Loss of consciousness [None]
  - Eczema [None]
  - Weight decreased [None]
  - Dry eye [None]
  - Dyspnoea [None]
  - Urinary incontinence [None]
  - Fatigue [None]
  - Depression [None]
  - Diplopia [None]
  - Jaundice [None]
  - Benign neoplasm [None]
  - Uterine leiomyoma [None]
  - Bone density abnormal [None]
  - Dyspepsia [None]
  - Contusion [None]
  - Decreased appetite [None]
  - Impaired gastric emptying [None]
  - Lactose intolerance [None]
  - Asthenia [None]
  - Aphonia [None]
